FAERS Safety Report 8011155-4 (Version None)
Quarter: 2011Q4

REPORT INFORMATION
  Report Type: 
  Country: None (occurrence: None)
  Receive Date: 20111228
  Receipt Date: 20111219
  Transmission Date: 20120403
  Serious: Yes (Hospitalization)
  Sender: FDA-Public Use
  Company Number: PHHO2011BE021136

PATIENT
  Sex: Male
  Weight: 15.8 kg

DRUGS (1)
  1. ILARIS [Suspect]
     Indication: CRYOPYRIN ASSOCIATED PERIODIC SYNDROME
     Dosage: 31.6 MG, UNK
     Dates: start: 20111122, end: 20111220

REACTIONS (2)
  - INFLUENZA [None]
  - LUNG INFECTION [None]
